FAERS Safety Report 15553132 (Version 6)
Quarter: 2023Q4

REPORT INFORMATION
  Report Type: Spontaneous
  Country: PL (occurrence: PL)
  Receive Date: 20181026
  Receipt Date: 20231127
  Transmission Date: 20240110
  Serious: Yes (Other)
  Sender: FDA-Public Use
  Company Number: PL-AUROBINDO-AUR-APL-2018-029210

PATIENT
  Age: 32 Year
  Sex: Female

DRUGS (21)
  1. METOPROLOL [Suspect]
     Active Substance: METOPROLOL
     Indication: Hypertension
     Dosage: 50 MILLIGRAM, ONCE A DAY, 1 (TRIMESTER)
     Route: 065
  2. AZATHIOPRINE [Suspect]
     Active Substance: AZATHIOPRINE
     Indication: Product used for unknown indication
     Dosage: 100 MILLIGRAM
     Route: 065
  3. AZATHIOPRINE [Suspect]
     Active Substance: AZATHIOPRINE
     Dosage: UNK
     Route: 065
     Dates: start: 200910, end: 201205
  4. AZATHIOPRINE [Suspect]
     Active Substance: AZATHIOPRINE
     Dosage: 100 MILLIGRAM
     Route: 065
     Dates: start: 201112
  5. AZATHIOPRINE [Suspect]
     Active Substance: AZATHIOPRINE
     Dosage: 100 MILLIGRAM
     Route: 065
     Dates: start: 201012, end: 201205
  6. AZATHIOPRINE [Suspect]
     Active Substance: AZATHIOPRINE
     Dosage: UNK
     Route: 065
     Dates: start: 201205, end: 201205
  7. BUDESONIDE [Suspect]
     Active Substance: BUDESONIDE
     Indication: Crohn^s disease
     Dosage: 3 MILLIGRAM, ONCE A DAY
     Route: 065
  8. BUDESONIDE [Suspect]
     Active Substance: BUDESONIDE
     Dosage: 3 MILLIGRAM
     Route: 065
     Dates: start: 200911
  9. BUDESONIDE [Suspect]
     Active Substance: BUDESONIDE
     Dosage: 3 MILLIGRAM
     Route: 065
     Dates: start: 201012
  10. BUDESONIDE [Suspect]
     Active Substance: BUDESONIDE
     Dosage: 3 MILLIGRAM
     Route: 065
     Dates: start: 201112
  11. BUDESONIDE [Suspect]
     Active Substance: BUDESONIDE
     Dosage: 3 MILLIGRAM
     Route: 065
     Dates: start: 201212
  12. BUDESONIDE [Suspect]
     Active Substance: BUDESONIDE
     Dosage: 3 MILLIGRAM
     Route: 065
     Dates: start: 201402
  13. BUDESONIDE [Suspect]
     Active Substance: BUDESONIDE
     Dosage: 3 MILLIGRAM, ONCE A DAY
     Route: 048
     Dates: start: 201405
  14. BUDESONIDE [Suspect]
     Active Substance: BUDESONIDE
     Dosage: 3 MILLIGRAM
     Route: 065
     Dates: start: 201410
  15. INFLIXIMAB [Suspect]
     Active Substance: INFLIXIMAB
     Indication: Product used for unknown indication
     Dosage: 3 DOSAGE FORM
     Route: 065
  16. INFLIXIMAB [Suspect]
     Active Substance: INFLIXIMAB
     Dosage: 3 DOSAGE FORM
     Route: 065
     Dates: start: 200804, end: 200805
  17. INFLIXIMAB [Suspect]
     Active Substance: INFLIXIMAB
     Dosage: 3 DOSES
     Route: 065
     Dates: start: 200805, end: 200805
  18. METHYLPREDNISOLONE [Suspect]
     Active Substance: METHYLPREDNISOLONE
     Indication: Product used for unknown indication
     Dosage: 32 MILLIGRAM
     Route: 065
  19. METHYLPREDNISOLONE [Suspect]
     Active Substance: METHYLPREDNISOLONE
     Dosage: 32 MILLIGRAM
     Route: 065
     Dates: start: 200802
  20. METHYLPREDNISOLONE [Suspect]
     Active Substance: METHYLPREDNISOLONE
     Dosage: 32 MILLIGRAM
     Route: 065
     Dates: start: 200805
  21. NITRENDIPINE [Suspect]
     Active Substance: NITRENDIPINE
     Indication: Hypertension
     Dosage: 15 MILLIGRAM, TWO TIMES A DAY
     Route: 065

REACTIONS (9)
  - Proteinuria [Unknown]
  - Urinary tract infection [Unknown]
  - C-reactive protein abnormal [Unknown]
  - Abdominal pain [Unknown]
  - Pyrexia [Recovered/Resolved]
  - Diarrhoea [Unknown]
  - Blood albumin increased [Unknown]
  - Maternal exposure during breast feeding [Recovered/Resolved]
  - Maternal exposure during pregnancy [Recovered/Resolved]

NARRATIVE: CASE EVENT DATE: 20130101
